FAERS Safety Report 10428004 (Version 1)
Quarter: 2014Q3

REPORT INFORMATION
  Report Type: Spontaneous
  Country: US (occurrence: US)
  Receive Date: 20140903
  Receipt Date: 20140903
  Transmission Date: 20150326
  Serious: Yes (Hospitalization, Other)
  Sender: FDA-Public Use
  Company Number: US-ACTAVIS-2014-19002

PATIENT
  Age: 64 Year
  Sex: Female

DRUGS (1)
  1. NICOTINE (WATSON LABORATORIES) [Suspect]
     Active Substance: NICOTINE
     Indication: EX-TOBACCO USER
     Dosage: ABOUT 30 PIECES/DAY; EACH PIECE CONTAINS 94 MG OF ELEMENTAL CALCIUM
     Route: 048

REACTIONS (2)
  - Overdose [Recovered/Resolved]
  - Milk-alkali syndrome [Recovered/Resolved]
